FAERS Safety Report 20699762 (Version 7)
Quarter: 2023Q2

REPORT INFORMATION
  Report Type: Spontaneous
  Country: US (occurrence: US)
  Receive Date: 20220412
  Receipt Date: 20230626
  Transmission Date: 20230722
  Serious: No
  Sender: FDA-Public Use
  Company Number: US-AIMMUNE THERAPEUTICS, INC.-2022AIMT00272

PATIENT

DRUGS (8)
  1. PALFORZIA [Suspect]
     Active Substance: PEANUT
     Indication: Food allergy
     Dosage: 160 MG, 1X/DAY
     Route: 048
     Dates: start: 20220216, end: 202203
  2. PALFORZIA [Suspect]
     Active Substance: PEANUT
     Dosage: 80 MG, 1X/DAY, DOSE DECREASED TO HALF-DOSES
     Route: 048
     Dates: start: 202203, end: 20220403
  3. PALFORZIA [Suspect]
     Active Substance: PEANUT
     Dosage: 160 MG, 1X/DAY, DOSE INCREASED
     Route: 048
     Dates: start: 20220404, end: 202208
  4. PALFORZIA [Suspect]
     Active Substance: PEANUT
     Dosage: 120 MG, 1X/DAY, DOSE DECREASED
     Route: 048
     Dates: start: 20220804
  5. PALFORZIA [Suspect]
     Active Substance: PEANUT
     Dosage: UNK, 1X/DAY, DOSE INCREASED
     Route: 048
  6. PALFORZIA [Suspect]
     Active Substance: PEANUT
     Dosage: UNK, ONCE, LAST DOSE PRIOR GI UPSET
     Route: 048
  7. PALFORZIA [Suspect]
     Active Substance: PEANUT
     Dosage: 120 MG, 1X/DAY, DOSE DECREASED
     Route: 048
  8. ZYRTEC [Concomitant]
     Active Substance: CETIRIZINE HYDROCHLORIDE
     Indication: Seasonal allergy
     Dosage: AS NEEDED
     Dates: start: 202203

REACTIONS (4)
  - Sensation of foreign body [Recovering/Resolving]
  - Ear pruritus [Unknown]
  - Throat irritation [Unknown]
  - Abdominal discomfort [Unknown]
